FAERS Safety Report 7377390-3 (Version None)
Quarter: 2011Q1

REPORT INFORMATION
  Report Type: 
  Country: None (occurrence: None)
  Receive Date: 20110328
  Receipt Date: 20110323
  Transmission Date: 20110831
  Serious: No
  Sender: FDA-Public Use
  Company Number: US-PFIZER INC-2011065308

PATIENT
  Sex: Female
  Weight: 65.76 kg

DRUGS (6)
  1. PREMARIN [Concomitant]
     Dosage: 0.3 MG, UNK
  2. XANAX [Concomitant]
     Indication: ANXIETY
     Dosage: UNK
  3. LIPITOR [Suspect]
     Dosage: 10 MG, 1X/DAY
  4. PROTONIX [Concomitant]
     Indication: GASTROOESOPHAGEAL REFLUX DISEASE
     Dosage: UNK
  5. SYNTHROID [Concomitant]
     Indication: HYPOTHYROIDISM
     Dosage: 0.5 UG, UNK
  6. LIPITOR [Suspect]
     Indication: BLOOD CHOLESTEROL INCREASED
     Dosage: 10 MG, 1X/DAY
     Route: 048

REACTIONS (4)
  - PAIN IN EXTREMITY [None]
  - URINE COLOUR ABNORMAL [None]
  - WEIGHT INCREASED [None]
  - BACK PAIN [None]
